FAERS Safety Report 22006071 (Version 2)
Quarter: 2023Q2

REPORT INFORMATION
  Report Type: Spontaneous
  Country: US (occurrence: US)
  Receive Date: 20230217
  Receipt Date: 20230414
  Transmission Date: 20230722
  Serious: No
  Sender: FDA-Public Use
  Company Number: US-ViiV Healthcare Limited-91624

PATIENT
  Sex: Male

DRUGS (3)
  1. TIVICAY [Suspect]
     Active Substance: DOLUTEGRAVIR SODIUM
     Indication: Product used for unknown indication
     Dosage: 50 MG
  2. TENOFOVIR DISOPROXIL FUMARATE [Suspect]
     Active Substance: TENOFOVIR DISOPROXIL FUMARATE
     Indication: Product used for unknown indication
     Dosage: UNK
  3. EMTRICITABINE [Suspect]
     Active Substance: EMTRICITABINE
     Indication: Product used for unknown indication
     Dosage: UNK

REACTIONS (7)
  - Vomiting [Unknown]
  - Abdominal discomfort [Unknown]
  - Erythema [Unknown]
  - Pruritus [Unknown]
  - Malaise [Unknown]
  - Ear pruritus [Unknown]
  - Product complaint [Unknown]
